FAERS Safety Report 6300312-0 (Version None)
Quarter: 2009Q3

REPORT INFORMATION
  Report Type: 
  Country: None (occurrence: None)
  Receive Date: 20090803
  Receipt Date: 20090715
  Transmission Date: 20100115
  Serious: Yes (Hospitalization)
  Sender: FDA-Public Use
  Company Number: GXKR2009ES08468

PATIENT
  Age: 74 Year
  Sex: Male

DRUGS (9)
  1. CITALOPRAM HYDROBROMIDE [Suspect]
     Dosage: 20 MG/DAY,
  2. FLUOXETINE [Suspect]
     Dosage: 20 MG/DAY,
  3. CIPROFLOXACIN [Suspect]
     Indication: URINARY RETENTION
     Dosage: 500 MG, BID,
  4. REBOXETINE (REBOXETINE) [Suspect]
     Dosage: 4 MG/DAY;
  5. ENALPRIL (ENALAPRIL) [Concomitant]
  6. ACETYLSALICYLIC ACID (ACETYLSALIC ACID) [Concomitant]
  7. DIAZEPAM [Concomitant]
  8. SULPRIDE (SULPIRIDE) [Concomitant]
  9. OXYBUTYNIN CHLORIDE [Concomitant]

REACTIONS (7)
  - ABASIA [None]
  - COGNITIVE DISORDER [None]
  - DRUG INTERACTION [None]
  - DYSARTHRIA [None]
  - GAIT DISTURBANCE [None]
  - MYDRIASIS [None]
  - SEROTONIN SYNDROME [None]
